FAERS Safety Report 13794465 (Version 3)
Quarter: 2017Q3

REPORT INFORMATION
  Report Type: Spontaneous
  Country: US (occurrence: US)
  Receive Date: 20170726
  Receipt Date: 20170822
  Transmission Date: 20171127
  Serious: No
  Sender: FDA-Public Use
  Company Number: US-PFIZER INC-2017322558

PATIENT
  Age: 57 Year
  Sex: Female
  Weight: 70.76 kg

DRUGS (2)
  1. PREDNISONE. [Concomitant]
     Active Substance: PREDNISONE
     Indication: ARTHRITIS
     Dosage: UNK
  2. XELJANZ XR [Suspect]
     Active Substance: TOFACITINIB CITRATE
     Indication: RHEUMATOID ARTHRITIS
     Dosage: 11 MG, 1X/DAY
     Route: 048
     Dates: start: 2017

REACTIONS (12)
  - Pyrexia [Not Recovered/Not Resolved]
  - Blood cholesterol increased [Unknown]
  - Oropharyngeal discomfort [Unknown]
  - Pharyngitis streptococcal [Unknown]
  - Gastric disorder [Unknown]
  - Nausea [Unknown]
  - Dizziness [Unknown]
  - Tonsillar disorder [Unknown]
  - Pharyngitis [Unknown]
  - Dysphagia [Unknown]
  - Oropharyngeal pain [Not Recovered/Not Resolved]
  - Feeling cold [Not Recovered/Not Resolved]

NARRATIVE: CASE EVENT DATE: 2017
